FAERS Safety Report 4357413-6 (Version None)
Quarter: 2004Q2

REPORT INFORMATION
  Report Type: 
  Country: None (occurrence: None)
  Receive Date: 20040511
  Receipt Date: 20040511
  Transmission Date: 20050107
  Serious: No
  Sender: FDA-Public Use
  Company Number: None

PATIENT
  Sex: Male
  Weight: 70.3075 kg

DRUGS (12)
  1. LISINOPRIL [Suspect]
     Indication: CARDIAC FAILURE CONGESTIVE
     Dosage: 10 MG PO QOD
     Route: 048
     Dates: start: 20030129, end: 20040226
  2. LISINOPRIL [Suspect]
     Indication: HYPERTENSION
     Dosage: 10 MG PO QOD
     Route: 048
     Dates: start: 20030129, end: 20040226
  3. ACETAMINOPHEN [Concomitant]
  4. ASPIRIN [Concomitant]
  5. CALCIUM CARBONATE [Concomitant]
  6. CARVEDILOL [Concomitant]
  7. DIGOXIN [Concomitant]
  8. FUROSEMIDE [Concomitant]
  9. METOLAZONE [Concomitant]
  10. OMEPRAZOLE [Concomitant]
  11. SIMVASTATIN [Concomitant]
  12. VITAMIN E [Concomitant]

REACTIONS (3)
  - SWELLING FACE [None]
  - TREATMENT NONCOMPLIANCE [None]
  - UPPER RESPIRATORY TRACT INFECTION [None]
